FAERS Safety Report 26012878 (Version 2)
Quarter: 2025Q4

REPORT INFORMATION
  Report Type: Report from Study
  Country: US (occurrence: US)
  Receive Date: 20251107
  Receipt Date: 20251229
  Transmission Date: 20260119
  Serious: Yes (Other)
  Sender: MALLINCKRODT
  Company Number: US-MALLINCKRODT-MNK202506806

PATIENT
  Age: 65 Year
  Sex: Female

DRUGS (3)
  1. CORTICOTROPIN [Suspect]
     Active Substance: CORTICOTROPIN
     Indication: Sarcoidosis
     Dosage: UNKNOWN
  2. INFLUENZA VIRUS VACCINE [Concomitant]
     Active Substance: INFLUENZA VIRUS VACCINE
     Dosage: UNKNOWN
     Dates: start: 202510
  3. COVID-19 VACCINE [Concomitant]
     Dosage: UNKNOWN
     Dates: start: 202510

REACTIONS (5)
  - Cataract [Not Recovered/Not Resolved]
  - Back pain [Unknown]
  - Stress [Unknown]
  - Crystal urine [Unknown]
  - Renal disorder [Unknown]

NARRATIVE: CASE EVENT DATE: 20251001
